FAERS Safety Report 5719091-0 (Version None)
Quarter: 2008Q2

REPORT INFORMATION
  Report Type: 
  Country: None (occurrence: None)
  Receive Date: 20080423
  Receipt Date: 20080418
  Transmission Date: 20081010
  Serious: Yes (Other)
  Sender: FDA-Public Use
  Company Number: 2008SP007366

PATIENT
  Age: 50 Year
  Sex: Male

DRUGS (2)
  1. VIRAFERONPEG [Suspect]
     Indication: HEPATITIS C
     Dosage: 1.5 MCG/KG; QW
  2. REBETOL [Suspect]
     Indication: HEPATITIS C
     Dosage: 800 MG; QD

REACTIONS (1)
  - LUNG DISORDER [None]
